APPROVED DRUG PRODUCT: MEGACE ES
Active Ingredient: MEGESTROL ACETATE
Strength: 125MG/ML
Dosage Form/Route: SUSPENSION;ORAL
Application: N021778 | Product #001
Applicant: ENDO OPERATIONS LTD
Approved: Jul 5, 2005 | RLD: Yes | RS: No | Type: DISCN